FAERS Safety Report 8131949-4 (Version None)
Quarter: 2012Q1

REPORT INFORMATION
  Report Type: 
  Country: None (occurrence: None)
  Receive Date: 20120213
  Receipt Date: 20120206
  Transmission Date: 20120608
  Serious: Yes (Life-Threatening, Hospitalization, Disabling)
  Sender: FDA-Public Use
  Company Number: US-CELGENEUS-163-21880-11111259

PATIENT
  Sex: Male

DRUGS (12)
  1. GABAPENTIN [Concomitant]
     Dosage: 300 MILLIGRAM
     Route: 065
  2. OMEPRAZOLE [Concomitant]
     Dosage: 50 MICROGRAM
     Route: 065
  3. FENTANYL [Concomitant]
     Route: 065
  4. REVLIMID [Suspect]
     Dosage: 10 MILLIGRAM
     Route: 048
     Dates: start: 20100501, end: 20111001
  5. TOPROL-XL [Concomitant]
     Dosage: 50 MICROGRAM
     Route: 065
  6. REVLIMID [Suspect]
     Indication: MULTIPLE MYELOMA
     Dosage: 25 MILLIGRAM
     Route: 048
     Dates: start: 20090701
  7. REVLIMID [Suspect]
     Dosage: 5 MILLIGRAM
     Route: 048
     Dates: start: 20100401
  8. FENTANYL [Concomitant]
     Dosage: 50 MICROGRAM
     Route: 065
  9. LORAZEPAM [Concomitant]
     Dosage: 50 MICROGRAM
     Route: 065
  10. LORAZEPAM [Concomitant]
     Dosage: .5 MILLIGRAM
     Route: 065
  11. TOPROL-XL [Concomitant]
     Dosage: 25 MILLIGRAM
     Route: 065
  12. OMEPRAZOLE [Concomitant]
     Dosage: 20 MILLIGRAM
     Route: 065

REACTIONS (3)
  - RENAL FAILURE [None]
  - MULTIPLE MYELOMA [None]
  - NEOPLASM PROGRESSION [None]
